FAERS Safety Report 12115049 (Version 1)
Quarter: 2016Q1

REPORT INFORMATION
  Report Type: Spontaneous
  Country: US (occurrence: US)
  Receive Date: 20160225
  Receipt Date: 20160225
  Transmission Date: 20160526
  Serious: Yes (Life-Threatening, Other)
  Sender: FDA-Public Use
  Company Number: US-PFIZER INC-2016088615

PATIENT
  Age: 58 Year
  Sex: Female

DRUGS (3)
  1. CHAPSTICK CLASSIC ORIGINAL [Suspect]
     Active Substance: PETROLATUM
     Dosage: UNK
  2. CHAPSTICK CLASSIC ORIGINAL [Suspect]
     Active Substance: PETROLATUM
     Indication: LIP DRY
     Dosage: USES ABOUT 20 TIMES A DAY AS NEEDED
  3. CHAPSTICK TOTAL HYDRATION [Suspect]
     Active Substance: COSMETICS
     Indication: LIP DRY
     Dosage: USE 20 TIMES A DAY AS NEEDED

REACTIONS (1)
  - Leiomyosarcoma [Not Recovered/Not Resolved]

NARRATIVE: CASE EVENT DATE: 2014
